FAERS Safety Report 26020202 (Version 1)
Quarter: 2025Q4

REPORT INFORMATION
  Report Type: Spontaneous
  Country: US (occurrence: US)
  Receive Date: 20251110
  Receipt Date: 20251110
  Transmission Date: 20260118
  Serious: No
  Sender: TENSHI KAIZEN PRIVATE LIMITED
  Company Number: US-TENSHI KAIZEN PRIVATE LIMITED-2024TK000117

PATIENT
  Sex: Female

DRUGS (2)
  1. LORATADINE [Suspect]
     Active Substance: LORATADINE
     Indication: Hypersensitivity
     Dosage: 1 ODT
     Route: 048
     Dates: start: 20241031
  2. LORATADINE [Suspect]
     Active Substance: LORATADINE
     Indication: Headache

REACTIONS (7)
  - Feeling abnormal [Unknown]
  - Patient dissatisfaction with treatment [Unknown]
  - Drug ineffective [Unknown]
  - Drug ineffective for unapproved indication [Unknown]
  - Product use in unapproved indication [Unknown]
  - Product size issue [Unknown]
  - Product taste abnormal [Unknown]
